FAERS Safety Report 16814930 (Version 1)
Quarter: 2019Q3

REPORT INFORMATION
  Report Type: Spontaneous
  Country: US (occurrence: US)
  Receive Date: 20190917
  Receipt Date: 20190917
  Transmission Date: 20191005
  Serious: No
  Sender: FDA-Public Use
  Company Number: US-ALLERGAN-1924088US

PATIENT
  Age: 73 Year
  Sex: Female

DRUGS (8)
  1. LINZESS [Suspect]
     Active Substance: LINACLOTIDE
     Dosage: 145 ?G
     Route: 048
  2. POTASSIUM [Concomitant]
     Active Substance: POTASSIUM
  3. OXYCODONE [Concomitant]
     Active Substance: OXYCODONE
  4. OPIATES [Concomitant]
     Active Substance: UNSPECIFIED INGREDIENT
     Indication: SPINAL CORD NEOPLASM
  5. XANAX [Concomitant]
     Active Substance: ALPRAZOLAM
  6. FENTANYL. [Concomitant]
     Active Substance: FENTANYL
  7. LINZESS [Suspect]
     Active Substance: LINACLOTIDE
     Indication: CONSTIPATION
     Dosage: 290 ?G
     Route: 048
     Dates: start: 20190606
  8. STOOL SOFTENER (DOCUSATE) [Concomitant]
     Active Substance: DOCUSATE

REACTIONS (4)
  - Drug ineffective [Unknown]
  - Abdominal pain [Recovered/Resolved]
  - Burning sensation [Not Recovered/Not Resolved]
  - Feeling abnormal [Not Recovered/Not Resolved]

NARRATIVE: CASE EVENT DATE: 20190606
